FAERS Safety Report 12329375 (Version 1)
Quarter: 2016Q2

REPORT INFORMATION
  Report Type: Report from Study
  Country: CN (occurrence: CN)
  Receive Date: 20160503
  Receipt Date: 20160503
  Transmission Date: 20160815
  Serious: Yes (Death, Other)
  Sender: FDA-Public Use
  Company Number: CN-SA-2016SA086622

PATIENT
  Age: 7 Year
  Sex: Female

DRUGS (1)
  1. ANTI-THYMOCYTE GLOBULIN (RABBIT)/RABBIT ANTI-HUMAN THYMOCYTE IMMUNOGLOBULIN [Suspect]
     Active Substance: LAPINE T-LYMPHOCYTE IMMUNE GLOBULIN
     Indication: APLASTIC ANAEMIA
     Route: 065
     Dates: start: 20120215

REACTIONS (23)
  - Abdominal pain upper [Unknown]
  - Abdominal distension [Unknown]
  - Peripheral swelling [Unknown]
  - Abdominal pain [Unknown]
  - Ventricular arrhythmia [Fatal]
  - Oxygen saturation decreased [Unknown]
  - Pleural effusion [Unknown]
  - Heart rate increased [Unknown]
  - Chest discomfort [Unknown]
  - Urine output decreased [Unknown]
  - Aeromona infection [Unknown]
  - Peritonitis [Unknown]
  - Sepsis [Unknown]
  - Pyrexia [Unknown]
  - Pneumonia [Unknown]
  - Blister [Unknown]
  - Lung disorder [Unknown]
  - Cardiac arrest [Fatal]
  - Respiratory failure [Unknown]
  - Respiration abnormal [Unknown]
  - Pulmonary haemorrhage [Unknown]
  - Haemoptysis [Unknown]
  - Hypotension [Unknown]

NARRATIVE: CASE EVENT DATE: 2012
